FAERS Safety Report 8216311-8 (Version None)
Quarter: 2012Q1

REPORT INFORMATION
  Report Type: 
  Country: None (occurrence: None)
  Receive Date: 20120316
  Receipt Date: 20120308
  Transmission Date: 20120608
  Serious: Yes (Hospitalization, Other)
  Sender: FDA-Public Use
  Company Number: PHEH2009US11084

PATIENT
  Sex: Female

DRUGS (47)
  1. CELEXA [Concomitant]
     Indication: DEPRESSION
  2. ZOLPIDEM [Concomitant]
  3. XANAX [Concomitant]
     Dosage: 0.25 MG, TID
  4. CELEBREX [Concomitant]
     Indication: ARTHRITIS
  5. ABILIFY [Concomitant]
     Dosage: 2 MG, QHS
  6. MECLIZINE [Concomitant]
     Dosage: 25 MG, TID, PRN
  7. MEGACE [Concomitant]
  8. NEXIUM [Concomitant]
  9. FUROSEMIDE [Concomitant]
  10. TOPROL-XL [Concomitant]
  11. CHEMOTHERAPEUTICS [Concomitant]
  12. ZOFRAN [Concomitant]
  13. NASACORT AQ [Suspect]
  14. FENTANYL-100 [Concomitant]
     Dosage: 225 UG, QOD
  15. FASLODEX [Concomitant]
  16. CLINDAMYCIN [Concomitant]
  17. ALPRAZOLAM [Concomitant]
     Dosage: 0.25 MG, UNK
  18. AREDIA [Suspect]
     Dates: end: 20080917
  19. MACROBID [Concomitant]
  20. NASACORT [Concomitant]
  21. LORAZEPAM [Concomitant]
  22. RADIATION [Concomitant]
  23. METROGEL [Concomitant]
  24. CYTOXAN [Concomitant]
  25. ZOMETA [Suspect]
     Indication: METASTASES TO BONE
     Dosage: 4 MG, QMO
     Route: 042
     Dates: end: 20081126
  26. XELODA [Concomitant]
  27. ALLEGRA-D 12 HOUR [Concomitant]
  28. CRESTOR [Concomitant]
     Dosage: 10 MG, QD
  29. ZEBUTAL [Concomitant]
  30. AMOXICILLIN [Concomitant]
     Dosage: 875 MG, BID
  31. ALLEGRA [Concomitant]
  32. ADRIAMYCIN PFS [Concomitant]
  33. DEXAMETHASONE [Concomitant]
     Dosage: 20 MG, UNK
  34. COUMADIN [Concomitant]
     Dosage: 3 MG, QD
  35. TAMOXIFEN CITRATE [Concomitant]
  36. ANZEMET [Concomitant]
  37. VICODIN [Concomitant]
  38. IMITREX [Concomitant]
     Dosage: 100 MG, PRN
  39. PERIDEX [Concomitant]
  40. CYCLOPHOSPHAMIDE [Concomitant]
  41. HEPARIN SODIUM [Concomitant]
  42. AMBIEN [Concomitant]
  43. NEXIUM [Concomitant]
     Dosage: 40 MG, QD
  44. HALOTUSSIN [Concomitant]
  45. WARFARIN SODIUM [Concomitant]
  46. SILVADENE [Concomitant]
  47. PRILOSEC [Concomitant]
     Dosage: 20 MG, UNK

REACTIONS (100)
  - INJURY [None]
  - PAIN [None]
  - PULMONARY THROMBOSIS [None]
  - ROAD TRAFFIC ACCIDENT [None]
  - RETROPERITONEAL HAEMORRHAGE [None]
  - MENIERE'S DISEASE [None]
  - GASTROOESOPHAGEAL REFLUX DISEASE [None]
  - BASAL CELL CARCINOMA [None]
  - GINGIVAL DISORDER [None]
  - MUSCULOSKELETAL CHEST PAIN [None]
  - TERATOMA [None]
  - HYPERLIPIDAEMIA [None]
  - ABDOMINAL PAIN UPPER [None]
  - ANAEMIA [None]
  - VERTIGO [None]
  - DENTAL CARIES [None]
  - ORAL CAVITY FISTULA [None]
  - KIDNEY INFECTION [None]
  - ARTHRALGIA [None]
  - MYALGIA [None]
  - EPISTAXIS [None]
  - LOWER LIMB FRACTURE [None]
  - ATRIAL FIBRILLATION [None]
  - IMPAIRED HEALING [None]
  - TOOTH INFECTION [None]
  - WEIGHT DECREASED [None]
  - HAEMORRHAGE [None]
  - ANXIETY [None]
  - ARTHRITIS [None]
  - TACHYCARDIA [None]
  - TOOTH FRACTURE [None]
  - TOOTH LOSS [None]
  - METASTASES TO LYMPH NODES [None]
  - LYMPHADENOPATHY MEDIASTINAL [None]
  - HILAR LYMPHADENOPATHY [None]
  - ROSACEA [None]
  - HEART RATE IRREGULAR [None]
  - PRIMARY SEQUESTRUM [None]
  - DENTAL PLAQUE [None]
  - NERVE INJURY [None]
  - BACK PAIN [None]
  - MYOCARDIAL ISCHAEMIA [None]
  - CONSTIPATION [None]
  - BLOOD CHOLESTEROL INCREASED [None]
  - IRON DEFICIENCY ANAEMIA [None]
  - LEUKOPENIA [None]
  - FLUID RETENTION [None]
  - DEPRESSION [None]
  - MIGRAINE [None]
  - URINARY TRACT INFECTION [None]
  - HIATUS HERNIA [None]
  - CARDIOMYOPATHY [None]
  - HERPES SIMPLEX [None]
  - MACROCYTOSIS [None]
  - VULVOVAGINAL MYCOTIC INFECTION [None]
  - NEUROPATHY PERIPHERAL [None]
  - HEPATIC CYST [None]
  - DYSPNOEA [None]
  - PLEURAL EFFUSION [None]
  - ORAL CANDIDIASIS [None]
  - RIB FRACTURE [None]
  - TREMOR [None]
  - RHINITIS [None]
  - SINUSITIS [None]
  - CARDIAC MURMUR [None]
  - CARDIAC FAILURE CONGESTIVE [None]
  - CLUSTER HEADACHE [None]
  - ACUTE MYOCARDIAL INFARCTION [None]
  - HYPERTENSION [None]
  - NEOPLASM MALIGNANT [None]
  - EXPOSED BONE IN JAW [None]
  - HAEMANGIOMA [None]
  - STOMATITIS [None]
  - CELLULITIS [None]
  - BRONCHITIS [None]
  - CONCUSSION [None]
  - OBESITY [None]
  - TRICUSPID VALVE INCOMPETENCE [None]
  - INSOMNIA [None]
  - HYPOAESTHESIA [None]
  - HOT FLUSH [None]
  - SMALL INTESTINAL OBSTRUCTION [None]
  - OSTEONECROSIS OF JAW [None]
  - ANHEDONIA [None]
  - ORAL PAIN [None]
  - SPINAL OSTEOARTHRITIS [None]
  - LEFT VENTRICULAR DYSFUNCTION [None]
  - LUNG NEOPLASM [None]
  - SPONDYLITIS [None]
  - COMA [None]
  - SLEEP APNOEA SYNDROME [None]
  - DEEP VEIN THROMBOSIS [None]
  - PULMONARY EMBOLISM [None]
  - PERICARDIAL EFFUSION MALIGNANT [None]
  - AGE-RELATED MACULAR DEGENERATION [None]
  - PNEUMONIA [None]
  - CYSTITIS [None]
  - NECK PAIN [None]
  - VENTRICULAR EXTRASYSTOLES [None]
  - LIP ULCERATION [None]
